FAERS Safety Report 5213772-3 (Version None)
Quarter: 2007Q1

REPORT INFORMATION
  Report Type: 
  Country: None (occurrence: None)
  Receive Date: 20070119
  Receipt Date: 20070105
  Transmission Date: 20070707
  Serious: Yes (Death)
  Sender: FDA-Public Use
  Company Number: JP-PFIZER INC-2006140788

PATIENT
  Sex: Male

DRUGS (10)
  1. ESTRACYT [Suspect]
     Indication: PROSTATE CANCER
     Route: 048
     Dates: start: 20030827, end: 20060411
  2. GASLON [Suspect]
     Indication: GASTRIC ULCER
     Route: 048
  3. RANITIDINE HYDROCHLORIDE [Suspect]
     Indication: GASTRIC ULCER
     Route: 048
  4. PILSICAINIDE HYDROCHLORIDE [Suspect]
     Indication: AORTIC VALVE INCOMPETENCE
     Route: 048
  5. WARFARIN POTASSIUM [Suspect]
     Indication: AORTIC VALVE INCOMPETENCE
     Route: 048
  6. TAMSULOSIN HCL [Suspect]
     Indication: BENIGN PROSTATIC HYPERPLASIA
     Route: 048
  7. PROPIVERINE HYDROCHLORIDE [Suspect]
     Indication: POLLAKIURIA
     Route: 048
  8. PREDNISOLONE [Suspect]
     Indication: INTERSTITIAL LUNG DISEASE
     Route: 048
  9. DOCETAXEL [Suspect]
     Indication: PROSTATE CANCER
     Route: 042
     Dates: start: 20050801, end: 20060411
  10. DEXAMETHASONE SODIUM PHOSPHATE [Suspect]
     Indication: PROSTATE CANCER
     Route: 048
     Dates: start: 20050816, end: 20060411

REACTIONS (1)
  - INTERSTITIAL LUNG DISEASE [None]
